FAERS Safety Report 9379605 (Version 3)
Quarter: 2013Q3

REPORT INFORMATION
  Report Type: Spontaneous
  Country: JP (occurrence: JP)
  Receive Date: 20130702
  Receipt Date: 20130814
  Transmission Date: 20140515
  Serious: Yes (Hospitalization)
  Sender: FDA-Public Use
  Company Number: PHHY2013JP068005

PATIENT
  Sex: 0

DRUGS (5)
  1. TEGRETOL [Suspect]
     Dosage: 500 MG, DAILY
     Route: 048
     Dates: end: 20130625
  2. TEGRETOL [Suspect]
     Dosage: UNK UKN, UNK
     Dates: start: 20130627
  3. SYMMETREL [Concomitant]
     Dosage: UNK UKN, UNK
     Route: 048
  4. DIAMOX [Concomitant]
     Dosage: UNK UKN, UNK
  5. LITHIUM CARBONATE [Concomitant]
     Dosage: UNK UKN, UNK
     Route: 048

REACTIONS (6)
  - Epilepsy [Recovered/Resolved]
  - Loss of consciousness [Recovered/Resolved]
  - Dyspnoea [Recovered/Resolved]
  - Vision blurred [Recovered/Resolved]
  - Incorrect route of drug administration [Unknown]
  - Drug ineffective [Unknown]
